FAERS Safety Report 24852959 (Version 3)
Quarter: 2025Q1

REPORT INFORMATION
  Report Type: Report from Study
  Country: US (occurrence: US)
  Receive Date: 20250116
  Receipt Date: 20250130
  Transmission Date: 20250409
  Serious: Yes (Other)
  Sender: ABBVIE
  Company Number: US-ABBVIE-6084634

PATIENT
  Age: 56 Year
  Sex: Male
  Weight: 122.46 kg

DRUGS (8)
  1. RINVOQ [Suspect]
     Active Substance: UPADACITINIB
     Indication: Rheumatoid arthritis
     Dosage: 15 MILLIGRAM?LAST ADMIN DATE: OCT 2024
     Route: 048
     Dates: start: 20230809, end: 202410
  2. RINVOQ [Suspect]
     Active Substance: UPADACITINIB
     Indication: Rheumatoid arthritis
     Dosage: FORM STRENGTH- 15 MG
     Route: 048
     Dates: start: 202411
  3. OMEPRAZOLE [Concomitant]
     Active Substance: OMEPRAZOLE
     Indication: Gastrooesophageal reflux disease
  4. GABAPENTIN [Concomitant]
     Active Substance: GABAPENTIN
     Indication: Arthritis
  5. ATORVASTATIN [Concomitant]
     Active Substance: ATORVASTATIN
     Indication: Blood cholesterol
  6. FOLIC ACID [Concomitant]
     Active Substance: FOLIC ACID
     Indication: Arthritis
  7. OZEMPIC [Concomitant]
     Active Substance: SEMAGLUTIDE
     Indication: Diabetes mellitus
  8. IBUPROFEN [Concomitant]
     Active Substance: IBUPROFEN
     Indication: Pain

REACTIONS (4)
  - Tendon rupture [Recovering/Resolving]
  - Surgery [Recovering/Resolving]
  - Procedural pain [Recovering/Resolving]
  - Muscle rupture [Recovering/Resolving]

NARRATIVE: CASE EVENT DATE: 20240917
